FAERS Safety Report 4875581-4 (Version None)
Quarter: 2006Q1

REPORT INFORMATION
  Report Type: 
  Country: None (occurrence: None)
  Receive Date: 20060109
  Receipt Date: 20051207
  Transmission Date: 20060701
  Serious: Yes (Hospitalization)
  Sender: FDA-Public Use
  Company Number: FR-ROCHE-430665

PATIENT
  Age: 60 Year
  Sex: Male

DRUGS (6)
  1. ROVALCYTE [Suspect]
     Indication: VIRAL INFECTION
     Route: 042
     Dates: start: 20050326, end: 20050331
  2. NEORECORMON [Concomitant]
     Indication: ANAEMIA
     Route: 058
     Dates: start: 20050326
  3. MABTHERA [Concomitant]
     Route: 042
     Dates: start: 20050323, end: 20050326
  4. VFEND [Concomitant]
     Indication: PROPHYLACTIC CHEMOTHERAPY
     Route: 042
     Dates: start: 20050301, end: 20050405
  5. ZAVEDOS [Concomitant]
     Indication: CHRONIC LYMPHOCYTIC LEUKAEMIA
     Route: 042
     Dates: start: 20050323, end: 20050326
  6. GRANOCYTE [Concomitant]
     Indication: APLASTIC ANAEMIA
     Route: 058
     Dates: start: 20050326, end: 20050401

REACTIONS (2)
  - HALLUCINATION, AUDITORY [None]
  - RENAL FAILURE CHRONIC [None]
